FAERS Safety Report 7983386-0 (Version None)
Quarter: 2011Q4

REPORT INFORMATION
  Report Type: 
  Country: None (occurrence: None)
  Receive Date: 20111215
  Receipt Date: 20111209
  Transmission Date: 20120403
  Serious: No
  Sender: FDA-Public Use
  Company Number: US-ELI_LILLY_AND_COMPANY-US201108002145

PATIENT
  Sex: Male
  Weight: 98.141 kg

DRUGS (5)
  1. ZYRTEC [Concomitant]
     Indication: SEASONAL ALLERGY
  2. CIALIS [Suspect]
     Indication: ERECTILE DYSFUNCTION
     Dosage: 20 MG, PRN
     Route: 048
     Dates: start: 20110728, end: 20110801
  3. NORCO [Concomitant]
     Indication: BACK PAIN
     Dosage: 0.5 DF, PRN
  4. NASACORT AQ [Concomitant]
     Dosage: UNK, PRN
  5. LUNESTA [Concomitant]
     Dosage: UNK, 3/W

REACTIONS (9)
  - ANXIETY [None]
  - INSOMNIA [None]
  - HYPOAESTHESIA [None]
  - MUSCULOSKELETAL STIFFNESS [None]
  - MUSCLE SPASMS [None]
  - BACK PAIN [None]
  - PAIN IN EXTREMITY [None]
  - WRONG TECHNIQUE IN DRUG USAGE PROCESS [None]
  - FLANK PAIN [None]
